FAERS Safety Report 25825003 (Version 1)
Quarter: 2025Q3

REPORT INFORMATION
  Report Type: Spontaneous
  Country: US (occurrence: None)
  Receive Date: 20250919
  Receipt Date: 20250919
  Transmission Date: 20251021
  Serious: Yes (Hospitalization)
  Sender: FDA-CTU
  Company Number: None

PATIENT
  Age: 28 Year
  Sex: Female
  Weight: 109.14 kg

DRUGS (12)
  1. IBSRELA [Suspect]
     Active Substance: TENAPANOR HYDROCHLORIDE
     Indication: Irritable bowel syndrome
     Dosage: 50 MG BID ORAL ?
     Route: 048
     Dates: start: 20250827, end: 20250831
  2. IBSRELA [Suspect]
     Active Substance: TENAPANOR HYDROCHLORIDE
     Indication: Constipation
  3. Albuterol HFA 90mcg lnh [Concomitant]
  4. AMMONIUM LACTATE [Concomitant]
     Active Substance: AMMONIUM LACTATE
  5. Azelastine/Fluticasone 137-50mch Nasal Spray [Concomitant]
  6. KETOCONAZOLE [Concomitant]
     Active Substance: KETOCONAZOLE
  7. METFORMIN [Concomitant]
     Active Substance: METFORMIN HYDROCHLORIDE
  8. NALTREXONE [Concomitant]
     Active Substance: NALTREXONE
  9. FAMOTIDINE [Concomitant]
     Active Substance: FAMOTIDINE
  10. Sodium Fluoride 1.2% toothpaste [Concomitant]
  11. Spirinolactone 100mg [Concomitant]
  12. SYMBICORT [Concomitant]
     Active Substance: BUDESONIDE\FORMOTEROL FUMARATE DIHYDRATE

REACTIONS (4)
  - Palpitations [None]
  - Palpitations [None]
  - Abdominal pain [None]
  - Therapy cessation [None]

NARRATIVE: CASE EVENT DATE: 20250827
